FAERS Safety Report 10586059 (Version 3)
Quarter: 2014Q4

REPORT INFORMATION
  Report Type: Spontaneous
  Country: CN (occurrence: CN)
  Receive Date: 20141115
  Receipt Date: 20141224
  Transmission Date: 20150529
  Serious: Yes (Hospitalization)
  Sender: FDA-Public Use
  Company Number: CN-ASTRAZENECA-2014SE68800

PATIENT
  Age: 53 Year
  Sex: Female

DRUGS (10)
  1. BETALOC ZOK [Suspect]
     Active Substance: METOPROLOL SUCCINATE
     Indication: HYPERTENSION
     Route: 048
     Dates: start: 201411
  2. CANGBAO [Concomitant]
  3. BETALOC ZOK [Suspect]
     Active Substance: METOPROLOL SUCCINATE
     Indication: EXTRASYSTOLES
     Route: 048
     Dates: start: 2013
  4. BETALOC ZOK [Suspect]
     Active Substance: METOPROLOL SUCCINATE
     Indication: EXTRASYSTOLES
     Route: 048
     Dates: start: 201411
  5. CHONDROITIN [Concomitant]
     Active Substance: CHONDROITIN
     Dosage: 3 TABLETS, BID
  6. CHONDROITIN [Concomitant]
     Active Substance: CHONDROITIN
     Dosage: 3 TABLETS, BID
  7. BETALOC ZOK [Suspect]
     Active Substance: METOPROLOL SUCCINATE
     Indication: HYPERTENSION
     Route: 048
     Dates: start: 2013
  8. CHONDROITIN [Concomitant]
     Active Substance: CHONDROITIN
     Dosage: 3 TABLETS, QD
  9. TRIMETAZIDINE DIHYDROCHLORIDE [Concomitant]
     Active Substance: TRIMETAZIDINE DIHYDROCHLORIDE
     Dosage: INTERMITTENTLY WHEN NEEDED
  10. GINGKO [Concomitant]
     Active Substance: GINKGO

REACTIONS (9)
  - Cholecystitis acute [Unknown]
  - Dyslipidaemia [Recovered/Resolved]
  - Gastric polyps [Unknown]
  - Uterine leiomyoma [Unknown]
  - Hepatic cyst [Unknown]
  - Chronic gastritis [Unknown]
  - Drug ineffective [Unknown]
  - Blood pressure inadequately controlled [Recovering/Resolving]
  - Dizziness [Recovered/Resolved]

NARRATIVE: CASE EVENT DATE: 201408
